FAERS Safety Report 18957019 (Version 1)
Quarter: 2021Q1

REPORT INFORMATION
  Report Type: Spontaneous
  Country: US (occurrence: US)
  Receive Date: 20210301
  Receipt Date: 20210301
  Transmission Date: 20210420
  Serious: No
  Sender: FDA-Public Use
  Company Number: None

PATIENT
  Age: 75 Year
  Sex: Female
  Weight: 111 kg

DRUGS (3)
  1. BARICITINIB. [Suspect]
     Active Substance: BARICITINIB
     Indication: COVID-19
     Route: 048
  2. BARICITINIB. [Concomitant]
     Active Substance: BARICITINIB
     Dates: start: 20210207, end: 20210225
  3. REMDESIVIR. [Concomitant]
     Active Substance: REMDESIVIR
     Dates: start: 20210205, end: 20210209

REACTIONS (2)
  - Product dose omission issue [None]
  - COVID-19 pneumonia [None]

NARRATIVE: CASE EVENT DATE: 20210225
